FAERS Safety Report 23962326 (Version 1)
Quarter: 2024Q2

REPORT INFORMATION
  Report Type: Spontaneous
  Country: FR (occurrence: FR)
  Receive Date: 20240611
  Receipt Date: 20240611
  Transmission Date: 20240716
  Serious: Yes (Hospitalization, Disabling)
  Sender: FDA-Public Use
  Company Number: FR-002147023-NVSC2024FR121533

PATIENT
  Age: 60 Year
  Sex: Male

DRUGS (1)
  1. HYDROCHLOROTHIAZIDE\VALSARTAN [Suspect]
     Active Substance: HYDROCHLOROTHIAZIDE\VALSARTAN
     Indication: Hypertension
     Dosage: 1 DOSAGE FORM, QD (MORE THAN 2 YEARS)
     Route: 065

REACTIONS (5)
  - Upper limb fracture [Unknown]
  - Fall [Unknown]
  - Dizziness [Unknown]
  - Drug intolerance [Unknown]
  - Product availability issue [Unknown]
